FAERS Safety Report 12535506 (Version 1)
Quarter: 2016Q3

REPORT INFORMATION
  Report Type: Spontaneous
  Country: ES (occurrence: ES)
  Receive Date: 20160707
  Receipt Date: 20160707
  Transmission Date: 20161109
  Serious: Yes (Other)
  Sender: FDA-Public Use
  Company Number: ES-SUN PHARMACEUTICAL INDUSTRIES LTD-2016RR-119685

PATIENT
  Age: 75 Year
  Sex: Female

DRUGS (5)
  1. PAROXETINE. [Suspect]
     Active Substance: PAROXETINE
     Indication: DEPRESSION
     Dosage: 40 MG, DAILY
     Route: 065
  2. MIRTAZAPINE. [Suspect]
     Active Substance: MIRTAZAPINE
     Indication: DEPRESSION
     Dosage: 15 MG, DAILY
     Route: 065
  3. CLONAZEPAM. [Suspect]
     Active Substance: CLONAZEPAM
     Indication: DEPRESSION
     Dosage: 2 MG, DAILY
     Route: 065
  4. SULPIRIDE [Suspect]
     Active Substance: SULPIRIDE
     Indication: DEPRESSION
     Dosage: 50-150 MG DAILY
     Route: 065
  5. QUETIAPINE. [Suspect]
     Active Substance: QUETIAPINE
     Indication: DEPRESSION
     Dosage: 25 MG, DAILY
     Route: 065

REACTIONS (1)
  - Parkinsonism [Recovering/Resolving]
